FAERS Safety Report 18931534 (Version 1)
Quarter: 2021Q1

REPORT INFORMATION
  Report Type: Spontaneous
  Country: US (occurrence: US)
  Receive Date: 20210223
  Receipt Date: 20210223
  Transmission Date: 20210420
  Serious: No
  Sender: FDA-Public Use
  Company Number: US-IGSA-SR10010023

PATIENT
  Age: 63 Year
  Sex: Female
  Weight: 146 kg

DRUGS (27)
  1. NORMAL SALINE [Concomitant]
     Active Substance: SODIUM CHLORIDE
     Indication: PREMEDICATION
     Dosage: 250 ML, Q.WK.
     Route: 042
  2. AZITHROMYCIN ANHYDROUS. [Concomitant]
     Active Substance: AZITHROMYCIN ANHYDROUS
     Indication: RESPIRATORY TRACT INFECTION
     Dosage: 250 MG, QD
  3. LIDODERM [Concomitant]
     Active Substance: LIDOCAINE
  4. METOLAZONE. [Concomitant]
     Active Substance: METOLAZONE
  5. PROTONIX                           /00661201/ [Concomitant]
     Active Substance: OMEPRAZOLE
  6. ADVAIR HFA [Concomitant]
     Active Substance: FLUTICASONE PROPIONATE\SALMETEROL XINAFOATE
  7. ESCITALOPRAM OXALATE. [Concomitant]
     Active Substance: ESCITALOPRAM OXALATE
  8. METHYLPREDNISOLONE. [Concomitant]
     Active Substance: METHYLPREDNISOLONE
  9. PROLASTIN?C LIQUID [Suspect]
     Active Substance: .ALPHA.1-PROTEINASE INHIBITOR HUMAN
     Dosage: 8736 MG, Q.WK.
     Route: 042
     Dates: start: 20190521
  10. SYNTHROID [Concomitant]
     Active Substance: LEVOTHYROXINE SODIUM
  11. RANITIDINE. [Concomitant]
     Active Substance: RANITIDINE
     Dosage: UNK
     Dates: end: 202001
  12. ALBUTEROL SULFATE. [Concomitant]
     Active Substance: ALBUTEROL SULFATE
  13. LASIX [Concomitant]
     Active Substance: FUROSEMIDE
  14. PROLASTIN?C LIQUID [Suspect]
     Active Substance: .ALPHA.1-PROTEINASE INHIBITOR HUMAN
     Indication: ALPHA-1 ANTITRYPSIN DEFICIENCY
     Dosage: 8736 MG, Q.WK.
     Route: 042
     Dates: start: 2020
  15. DEXILANT [Concomitant]
     Active Substance: DEXLANSOPRAZOLE
  16. PREDNISONE. [Concomitant]
     Active Substance: PREDNISONE
  17. QVAR [Concomitant]
     Active Substance: BECLOMETHASONE DIPROPIONATE
  18. SPIRIVA [Concomitant]
     Active Substance: TIOTROPIUM BROMIDE MONOHYDRATE
  19. LORAZEPAM. [Concomitant]
     Active Substance: LORAZEPAM
  20. PROAIR HFA [Concomitant]
     Active Substance: ALBUTEROL SULFATE
  21. PROCHLORPERAZINE MALEATE. [Concomitant]
     Active Substance: PROCHLORPERAZINE MALEATE
  22. BUTALBITAL APAP CAFFEINE [Concomitant]
     Active Substance: ACETAMINOPHEN\BUTALBITAL\CAFFEINE
  23. CYCLOBENZAPRINE HCL [Concomitant]
     Active Substance: CYCLOBENZAPRINE HYDROCHLORIDE
  24. LEVOFLOXACIN. [Concomitant]
     Active Substance: LEVOFLOXACIN
  25. ALLOPURINOL. [Concomitant]
     Active Substance: ALLOPURINOL
  26. CIPROFLOXACIN HCL [Concomitant]
     Active Substance: CIPROFLOXACIN HYDROCHLORIDE
  27. KLOR?CON M20 [Concomitant]
     Active Substance: POTASSIUM CHLORIDE

REACTIONS (3)
  - Diarrhoea [Not Recovered/Not Resolved]
  - Nausea [Not Recovered/Not Resolved]
  - Vomiting [Not Recovered/Not Resolved]

NARRATIVE: CASE EVENT DATE: 202001
